FAERS Safety Report 20351529 (Version 10)
Quarter: 2023Q4

REPORT INFORMATION
  Report Type: Spontaneous
  Country: IN (occurrence: IN)
  Receive Date: 20220119
  Receipt Date: 20231009
  Transmission Date: 20240110
  Serious: Yes (Hospitalization, Other)
  Sender: FDA-Public Use
  Company Number: IN-PFIZER INC-2021112981

PATIENT
  Age: 53 Year
  Sex: Male
  Weight: 98 kg

DRUGS (5)
  1. CRIZOTINIB [Suspect]
     Active Substance: CRIZOTINIB
     Indication: Lung adenocarcinoma
     Dosage: 250 MG, 2X/DAY
     Route: 048
     Dates: start: 20201203
  2. CRIZOTINIB [Suspect]
     Active Substance: CRIZOTINIB
     Dosage: 250 MG, 2X/DAY
     Route: 048
     Dates: start: 20201210
  3. CRIZOTINIB [Suspect]
     Active Substance: CRIZOTINIB
     Dosage: 250 MG, 2X/DAY
     Route: 048
     Dates: start: 20210123
  4. CRIZOTINIB [Suspect]
     Active Substance: CRIZOTINIB
     Dosage: 250 MG, OD
  5. ZOLEDRONIC ACID [Concomitant]
     Active Substance: ZOLEDRONIC ACID
     Dosage: 4 MG, MONTHLY
     Dates: start: 20201221

REACTIONS (28)
  - Nephrolithiasis [Unknown]
  - Back pain [Unknown]
  - Pneumonia [Recovered/Resolved]
  - Pyrexia [Recovered/Resolved]
  - Cough [Recovering/Resolving]
  - Dysgeusia [Unknown]
  - Fatigue [Unknown]
  - Vitreous floaters [Unknown]
  - Hypertransaminasaemia [Unknown]
  - Blood alkaline phosphatase increased [Unknown]
  - Osteosclerosis [Unknown]
  - Bronchial disorder [Unknown]
  - Urinary tract infection bacterial [Unknown]
  - Mental disorder [Unknown]
  - Blood creatinine increased [Unknown]
  - Haemoglobin decreased [Unknown]
  - Platelet count abnormal [Unknown]
  - Hilar lymphadenopathy [Unknown]
  - Vitamin D decreased [Unknown]
  - Iron deficiency [Unknown]
  - Alanine aminotransferase increased [Unknown]
  - Constipation [Not Recovered/Not Resolved]
  - Fibrosis [Unknown]
  - Blood triglycerides abnormal [Unknown]
  - Peripheral swelling [Not Recovered/Not Resolved]
  - Weight increased [Not Recovered/Not Resolved]
  - Blood uric acid increased [Not Recovered/Not Resolved]
  - Diarrhoea [Unknown]

NARRATIVE: CASE EVENT DATE: 20201201
